FAERS Safety Report 21785081 (Version 1)
Quarter: 2022Q4

REPORT INFORMATION
  Report Type: Spontaneous
  Country: JP (occurrence: JP)
  Receive Date: 20221227
  Receipt Date: 20221227
  Transmission Date: 20230113
  Serious: Yes (Other)
  Sender: FDA-Public Use
  Company Number: JP-PFIZER INC-PV202200129412

PATIENT
  Age: 9 Decade
  Sex: Male

DRUGS (1)
  1. TAFAMIDIS [Suspect]
     Active Substance: TAFAMIDIS
     Dosage: 1 CAPSULE/DAY
     Route: 048

REACTIONS (4)
  - Atrial fibrillation [Unknown]
  - Dizziness [Unknown]
  - Fall [Unknown]
  - Anaemia [Unknown]
